FAERS Safety Report 21531636 (Version 1)
Quarter: 2022Q4

REPORT INFORMATION
  Report Type: Spontaneous
  Country: US (occurrence: None)
  Receive Date: 20221028
  Receipt Date: 20221028
  Transmission Date: 20230113
  Serious: Yes (Life-Threatening, Hospitalization)
  Sender: FDA-Public Use
  Company Number: None

PATIENT
  Age: 73 Year
  Sex: Male
  Weight: 91 kg

DRUGS (1)
  1. LISINOPRIL [Suspect]
     Active Substance: LISINOPRIL
     Indication: Hypertension
     Dosage: 0.5 MG EVERY DAY PO?
     Route: 048
     Dates: start: 19980914, end: 20220512

REACTIONS (2)
  - Hypothermia [None]
  - Hyperkalaemia [None]

NARRATIVE: CASE EVENT DATE: 20220512
